APPROVED DRUG PRODUCT: KAFOCIN
Active Ingredient: CEPHALOGLYCIN
Strength: 250MG
Dosage Form/Route: CAPSULE;ORAL
Application: N050219 | Product #001
Applicant: ELI LILLY AND CO
Approved: Approved Prior to Jan 1, 1982 | RLD: No | RS: No | Type: DISCN